FAERS Safety Report 25544395 (Version 6)
Quarter: 2025Q3

REPORT INFORMATION
  Report Type: Spontaneous
  Country: JP (occurrence: JP)
  Receive Date: 20250711
  Receipt Date: 20250923
  Transmission Date: 20251021
  Serious: Yes (Other)
  Sender: PFIZER
  Company Number: JP-ONO-2025JP011358

PATIENT
  Age: 70 Year
  Sex: Male
  Weight: 51.4 kg

DRUGS (11)
  1. MEKTOVI [Suspect]
     Active Substance: BINIMETINIB
     Indication: Colon cancer stage IV
     Dosage: 90 MG, DAILY (1X/DAY)
     Route: 048
  2. MEKTOVI [Suspect]
     Active Substance: BINIMETINIB
     Indication: Rectal cancer stage IV
     Dosage: 90 MG, DAILY (1X/DAY) (RESUMED AT DAY 85)
     Route: 048
  3. MEKTOVI [Suspect]
     Active Substance: BINIMETINIB
     Indication: Colorectal cancer
     Dosage: 60 MG, DAILY (1X/DAY), (RESUMED AND DOSE REDUCTION AT DAY 99)
     Route: 048
  4. BRAFTOVI [Concomitant]
     Active Substance: ENCORAFENIB
     Indication: Colon cancer stage IV
     Dosage: 300 MG, DAILY (1X/DAY)
     Route: 048
  5. BRAFTOVI [Concomitant]
     Active Substance: ENCORAFENIB
     Indication: Rectal cancer stage IV
     Dosage: 300 MG, DAILY (1X/DAY), (RESUMED AT DAY 85)
     Route: 048
  6. BRAFTOVI [Concomitant]
     Active Substance: ENCORAFENIB
     Indication: Colorectal cancer
     Dosage: 200 MG, DAILY (1X/DAY), (RESUMED AND DOSE REDUCED AT DAY 99)
     Route: 048
  7. BRAFTOVI [Concomitant]
     Active Substance: ENCORAFENIB
     Dosage: 200 MG, DAILY (1X/DAY), (RESUMED AT DAY 113)
     Route: 048
  8. CETUXIMAB [Concomitant]
     Active Substance: CETUXIMAB
     Indication: Colon cancer stage IV
     Route: 042
  9. CETUXIMAB [Concomitant]
     Active Substance: CETUXIMAB
     Indication: Rectal cancer stage IV
     Route: 065
  10. CETUXIMAB [Concomitant]
     Active Substance: CETUXIMAB
     Indication: Colorectal cancer
     Route: 042
  11. CETUXIMAB [Concomitant]
     Active Substance: CETUXIMAB
     Route: 042

REACTIONS (7)
  - Cardiac dysfunction [Recovered/Resolved]
  - Renal impairment [Recovered/Resolved]
  - Hypokalaemia [Recovered/Resolved]
  - Ejection fraction decreased [Recovered/Resolved]
  - Hypomagnesaemia [Recovered/Resolved]
  - Cardiothoracic ratio decreased [Unknown]
  - Blood pressure increased [Unknown]
